FAERS Safety Report 6075954-0 (Version None)
Quarter: 2009Q1

REPORT INFORMATION
  Report Type: 
  Country: None (occurrence: None)
  Receive Date: 20090121
  Receipt Date: 20080505
  Transmission Date: 20090719
  Serious: Yes (Other)
  Sender: FDA-Public Use
  Company Number: US-WYE-H03982708

PATIENT
  Age: 64 Year
  Sex: Female

DRUGS (9)
  1. PREMPRO [Suspect]
  2. PREMARIN [Suspect]
  3. PROVERA [Suspect]
  4. SYNTHROID [Concomitant]
  5. PRAVACHOL [Concomitant]
  6. EFFEXOR [Concomitant]
  7. FOLTX (PYRIDOXINE/FOLACIN/CYANOCOBALAMIN) [Concomitant]
  8. IMITREX [Concomitant]
  9. MOBIC [Concomitant]

REACTIONS (2)
  - BREAST CANCER [None]
  - GALLBLADDER DISORDER [None]
